FAERS Safety Report 10689752 (Version 2)
Quarter: 2015Q1

REPORT INFORMATION
  Report Type: Spontaneous
  Country: US (occurrence: US)
  Receive Date: 20150105
  Receipt Date: 20150204
  Transmission Date: 20150720
  Serious: No
  Sender: FDA-Public Use
  Company Number: US-PFIZER INC-2015001626

PATIENT
  Age: 54 Year
  Sex: Female

DRUGS (6)
  1. EFFEXOR XR [Suspect]
     Active Substance: VENLAFAXINE HYDROCHLORIDE
     Indication: DEPRESSION
     Dosage: 75 MG, 3X/DAY
  2. SUPER B-COMPLEX [Concomitant]
     Dosage: 1 DF, DAILY
  3. ASPIRIN. [Concomitant]
     Active Substance: ASPIRIN
     Dosage: 81 MG, 1X/DAY
     Dates: start: 2013
  4. CLONAZEPAM. [Concomitant]
     Active Substance: CLONAZEPAM
     Dosage: 0.5 MG BEFORE BED TIME
     Dates: end: 201410
  5. GABAPENTIN. [Concomitant]
     Active Substance: GABAPENTIN
     Dosage: 600 MG, 2X/DAY
     Dates: start: 2012
  6. NAPROXEN. [Concomitant]
     Active Substance: NAPROXEN
     Dosage: 220 MG 2 TABS ONCE DAILY
     Dates: start: 2012

REACTIONS (3)
  - Feeling abnormal [Recovered/Resolved]
  - Withdrawal syndrome [Unknown]
  - Head discomfort [Unknown]
